FAERS Safety Report 5674757-6 (Version None)
Quarter: 2008Q1

REPORT INFORMATION
  Report Type: 
  Country: None (occurrence: None)
  Receive Date: 20080320
  Receipt Date: 20080314
  Transmission Date: 20080703
  Serious: Yes (Other)
  Sender: FDA-Public Use
  Company Number: AU-MERCK-0803AUS00143

PATIENT
  Age: 80 Year

DRUGS (3)
  1. FOSAMAX [Suspect]
     Indication: OSTEOPOROSIS
     Route: 048
     Dates: start: 20000101, end: 20060601
  2. FOSAMAX [Suspect]
     Route: 048
     Dates: start: 20060101
  3. RISEDRONATE SODIUM [Concomitant]
     Indication: OSTEOPOROSIS
     Route: 065
     Dates: start: 20060601, end: 20060101

REACTIONS (2)
  - FALL [None]
  - HIP FRACTURE [None]
